FAERS Safety Report 10007977 (Version 2)
Quarter: 2014Q1

REPORT INFORMATION
  Report Type: Spontaneous
  Country: US (occurrence: US)
  Receive Date: 20140313
  Receipt Date: 20140313
  Transmission Date: 20141002
  Serious: Yes (Other)
  Sender: FDA-Public Use
  Company Number: US-ELI_LILLY_AND_COMPANY-US201402006061

PATIENT
  Sex: Female

DRUGS (5)
  1. EVISTA [Concomitant]
  2. FOLIC ACID [Concomitant]
  3. VITAMIN B12 [Concomitant]
  4. ALIMTA [Suspect]
     Indication: LUNG NEOPLASM MALIGNANT
     Dosage: UNK
     Route: 042
     Dates: start: 20131219
  5. CISPLATIN [Suspect]

REACTIONS (5)
  - Rectal haemorrhage [Unknown]
  - Neuropathy peripheral [Unknown]
  - Oropharyngeal pain [Unknown]
  - Stomatitis [Unknown]
  - Pyrexia [Unknown]
